FAERS Safety Report 17661215 (Version 1)
Quarter: 2020Q2

REPORT INFORMATION
  Report Type: Spontaneous
  Country: US (occurrence: US)
  Receive Date: 20200413
  Receipt Date: 20200413
  Transmission Date: 20200713
  Serious: Yes (Life-Threatening, Hospitalization)
  Sender: FDA-Public Use
  Company Number: US-COVIS PHARMA B.V.-2020COV00150

PATIENT
  Age: 57 Year
  Sex: Female

DRUGS (5)
  1. OMEPRAZOLE MAGNESIUM. [Suspect]
     Active Substance: OMEPRAZOLE MAGNESIUM
     Route: 065
  2. ESCITALOPRAM [Suspect]
     Active Substance: ESCITALOPRAM OXALATE
     Route: 065
  3. ONDANSETRON [Suspect]
     Active Substance: ONDANSETRON
     Route: 065
  4. HYDROXYZINE [Suspect]
     Active Substance: HYDROXYZINE HYDROCHLORIDE
     Route: 065
  5. LOPERAMIDE [Suspect]
     Active Substance: LOPERAMIDE
     Route: 065

REACTIONS (2)
  - Long QT syndrome [Recovered/Resolved]
  - Cardiac arrest [Recovered/Resolved]
